FAERS Safety Report 9659794 (Version 1)
Quarter: 2013Q4

REPORT INFORMATION
  Report Type: Spontaneous
  Country: US (occurrence: US)
  Receive Date: 20131031
  Receipt Date: 20131031
  Transmission Date: 20140711
  Serious: No
  Sender: FDA-Public Use
  Company Number: US-PFIZER INC-2013309369

PATIENT
  Age: 49 Year
  Sex: Female

DRUGS (3)
  1. AMLODIPINE BESILATE [Suspect]
     Dosage: UNK
     Dates: start: 20131005
  2. LOSARTAN POTASSIUM [Suspect]
     Indication: HYPERTENSION
     Dosage: UNK
     Dates: start: 20131005
  3. EXFORGE [Suspect]
     Dosage: UNK
     Dates: start: 20131006

REACTIONS (8)
  - Malaise [Unknown]
  - Drug effect incomplete [Unknown]
  - Headache [Unknown]
  - Back pain [Unknown]
  - Fatigue [Unknown]
  - Dizziness [Unknown]
  - Asthenia [Unknown]
  - Condition aggravated [Unknown]
